FAERS Safety Report 4755657-2 (Version None)
Quarter: 2005Q3

REPORT INFORMATION
  Report Type: 
  Country: None (occurrence: None)
  Receive Date: 20050830
  Receipt Date: 20050615
  Transmission Date: 20060218
  Serious: No
  Sender: FDA-Public Use
  Company Number: US-BRISTOL-MYERS SQUIBB COMPANY-13006713

PATIENT

DRUGS (1)
  1. ABILIFY [Suspect]

REACTIONS (3)
  - BODY TEMPERATURE FLUCTUATION [None]
  - FEELING COLD [None]
  - FEELING HOT [None]
